FAERS Safety Report 20848880 (Version 1)
Quarter: 2022Q2

REPORT INFORMATION
  Report Type: Spontaneous
  Country: US (occurrence: None)
  Receive Date: 20220518
  Receipt Date: 20220518
  Transmission Date: 20220721
  Serious: Yes (Hospitalization)
  Sender: FDA-Public Use
  Company Number: None

PATIENT
  Age: 67 Year
  Sex: Male

DRUGS (1)
  1. ABIRATERONE [Suspect]
     Active Substance: ABIRATERONE
     Dosage: 500 DAILY ORAL?
     Route: 048

REACTIONS (5)
  - Incorrect dose administered [None]
  - Dehydration [None]
  - Asthenia [None]
  - Blood phosphorus [None]
  - Loss of consciousness [None]

NARRATIVE: CASE EVENT DATE: 20220518
